FAERS Safety Report 16760554 (Version 1)
Quarter: 2019Q3

REPORT INFORMATION
  Report Type: Spontaneous
  Country: US (occurrence: US)
  Receive Date: 20190712
  Receipt Date: 20190712
  Transmission Date: 20191005
  Serious: Yes (Hospitalization)
  Sender: FDA-Public Use
  Company Number: None

PATIENT
  Age: 17 Year
  Sex: Male

DRUGS (1)
  1. OCTREOTIDE 200MCG/ML [Suspect]
     Active Substance: OCTREOTIDE
     Indication: BENIGN ENDOCRINE NEOPLASM
     Route: 058
     Dates: start: 20190627, end: 20190701

REACTIONS (2)
  - Hospitalisation [None]
  - Adverse drug reaction [None]

NARRATIVE: CASE EVENT DATE: 20190701
